FAERS Safety Report 10567324 (Version 3)
Quarter: 2015Q1

REPORT INFORMATION
  Report Type: Spontaneous
  Country: IT (occurrence: IT)
  Receive Date: 20141106
  Receipt Date: 20150206
  Transmission Date: 20150720
  Serious: Yes (Hospitalization, Other)
  Sender: FDA-Public Use
  Company Number: IT-AMGEN-ITASP2014085443

PATIENT
  Age: 69 Year
  Sex: Female
  Weight: 68 kg

DRUGS (4)
  1. ADALIMUMAB [Concomitant]
     Active Substance: ADALIMUMAB
     Indication: RHEUMATOID ARTHRITIS
     Dosage: 40 MG, 2 WEEKS
     Route: 058
  2. METHOTREXATE [Concomitant]
     Active Substance: METHOTREXATE
     Indication: RHEUMATOID ARTHRITIS
     Dosage: 7.5 MG, QWK
     Route: 030
  3. PROLIA [Suspect]
     Active Substance: DENOSUMAB
     Indication: OSTEOPOROSIS POSTMENOPAUSAL
     Dosage: 60 MG, Q6MO
     Route: 058
     Dates: start: 201401, end: 201407
  4. PREDNISONE. [Suspect]
     Active Substance: PREDNISONE
     Indication: RHEUMATOID ARTHRITIS
     Dosage: 5 MG, QD
     Route: 048
     Dates: start: 2008, end: 2014

REACTIONS (3)
  - Tooth disorder [Unknown]
  - Osteonecrosis of jaw [Not Recovered/Not Resolved]
  - Tooth avulsion [Unknown]

NARRATIVE: CASE EVENT DATE: 20140825
